FAERS Safety Report 9160775 (Version 1)
Quarter: 2013Q1

REPORT INFORMATION
  Report Type: Spontaneous
  Country: US (occurrence: US)
  Receive Date: 20130313
  Receipt Date: 20130313
  Transmission Date: 20140127
  Serious: Yes (Other)
  Sender: FDA-Public Use
  Company Number: US-ABBOTT-12P-163-0913918-00

PATIENT
  Sex: 0

DRUGS (1)
  1. DIVALPROEX SODIUM [Suspect]
     Indication: CONVULSION PROPHYLAXIS

REACTIONS (1)
  - Convulsion [Recovered/Resolved]
